FAERS Safety Report 18717480 (Version 2)
Quarter: 2021Q1

REPORT INFORMATION
  Report Type: Report from Study
  Country: US (occurrence: US)
  Receive Date: 20210108
  Receipt Date: 20210219
  Transmission Date: 20210419
  Serious: Yes (Other)
  Sender: FDA-Public Use
  Company Number: NVSC2021US003243

PATIENT
  Sex: Female

DRUGS (1)
  1. GILENYA [Suspect]
     Active Substance: FINGOLIMOD HYDROCHLORIDE
     Indication: RELAPSING-REMITTING MULTIPLE SCLEROSIS
     Dosage: 0.5 MG, QD
     Route: 048

REACTIONS (7)
  - Fatigue [Unknown]
  - Temperature intolerance [Unknown]
  - Feeling abnormal [Unknown]
  - Sleep disorder [Unknown]
  - Epilepsy [Unknown]
  - Memory impairment [Unknown]
  - Optic neuritis [Unknown]
